FAERS Safety Report 12232211 (Version 1)
Quarter: 2016Q2

REPORT INFORMATION
  Report Type: Spontaneous
  Country: US (occurrence: US)
  Receive Date: 20160401
  Receipt Date: 20160401
  Transmission Date: 20160815
  Serious: No
  Sender: FDA-Public Use
  Company Number: US-PFIZER INC-2016162588

PATIENT
  Sex: Female

DRUGS (2)
  1. EFFEXOR XR [Suspect]
     Active Substance: VENLAFAXINE HYDROCHLORIDE
     Dosage: 75 MG
  2. EFFEXOR XR [Suspect]
     Active Substance: VENLAFAXINE HYDROCHLORIDE
     Dosage: 150 MG

REACTIONS (6)
  - Insomnia [Unknown]
  - Malaise [Unknown]
  - Nightmare [Unknown]
  - Withdrawal syndrome [Unknown]
  - Abnormal dreams [Unknown]
  - Feeling abnormal [Unknown]
